FAERS Safety Report 15750596 (Version 1)
Quarter: 2018Q4

REPORT INFORMATION
  Report Type: Spontaneous
  Country: US (occurrence: US)
  Receive Date: 20181206
  Receipt Date: 20181206
  Transmission Date: 20190205
  Serious: Yes (Hospitalization)
  Sender: FDA-Public Use
  Company Number: None

PATIENT
  Age: 46 Year
  Sex: Female
  Weight: 81.6 kg

DRUGS (6)
  1. LISINOPRIL. [Suspect]
     Active Substance: LISINOPRIL
     Indication: HYPERTENSION
     Route: 048
     Dates: start: 20181116, end: 20181125
  2. LEVOTHYROXINE 112 MCG [Concomitant]
     Active Substance: LEVOTHYROXINE
  3. NUVARING VAGINAL RING [Concomitant]
  4. NAPROXEN 220 MG [Concomitant]
  5. OMEPRAZOLE 40 MG [Concomitant]
     Active Substance: OMEPRAZOLE
  6. CITALOPRAM [Concomitant]
     Active Substance: CITALOPRAM HYDROBROMIDE

REACTIONS (1)
  - Angioedema [None]

NARRATIVE: CASE EVENT DATE: 20181126
